FAERS Safety Report 8482113-0 (Version None)
Quarter: 2012Q2

REPORT INFORMATION
  Report Type: 
  Country: None (occurrence: None)
  Receive Date: 20120402
  Receipt Date: 20110727
  Transmission Date: 20120825
  Serious: Yes (Other)
  Sender: FDA-Public Use
  Company Number: A-US2011-52072

PATIENT
  Age: 79 Year
  Sex: Male
  Weight: 77.1 kg

DRUGS (3)
  1. INSULIN (INSULIN) [Concomitant]
  2. TRACLEER [Suspect]
     Indication: PULMONARY ARTERIAL HYPERTENSION
     Dosage: 125 MG, BID, ORAL
     Route: 048
     Dates: start: 20110415, end: 20110804
  3. CALCIUM CHANNEL BLOCKERS [Concomitant]

REACTIONS (2)
  - HAEMOGLOBIN DECREASED [None]
  - DYSPNOEA [None]
